FAERS Safety Report 6644455-0 (Version None)
Quarter: 2010Q1

REPORT INFORMATION
  Report Type: 
  Country: None (occurrence: None)
  Receive Date: 20100322
  Receipt Date: 20100310
  Transmission Date: 20100710
  Serious: Yes (Death, Other)
  Sender: FDA-Public Use
  Company Number: JP-ROCHE-691611

PATIENT
  Sex: Male

DRUGS (45)
  1. AVASTIN [Suspect]
     Indication: COLON CANCER RECURRENT
     Route: 041
     Dates: start: 20070925, end: 20070925
  2. AVASTIN [Suspect]
     Route: 041
     Dates: start: 20071023, end: 20071023
  3. AVASTIN [Suspect]
     Route: 041
     Dates: start: 20071121, end: 20071121
  4. AVASTIN [Suspect]
     Route: 041
     Dates: start: 20071219, end: 20071219
  5. AVASTIN [Suspect]
     Route: 041
     Dates: start: 20080116, end: 20080116
  6. AVASTIN [Suspect]
     Route: 041
     Dates: start: 20080207, end: 20080207
  7. AVASTIN [Suspect]
     Route: 041
     Dates: start: 20080305, end: 20080305
  8. AVASTIN [Suspect]
     Route: 041
     Dates: start: 20080402, end: 20080402
  9. ELPLAT [Suspect]
     Indication: COLON CANCER RECURRENT
     Route: 041
     Dates: start: 20070925, end: 20070925
  10. ELPLAT [Suspect]
     Route: 041
     Dates: start: 20071023, end: 20071023
  11. ELPLAT [Suspect]
     Route: 041
     Dates: start: 20071121, end: 20071121
  12. ELPLAT [Suspect]
     Route: 041
     Dates: start: 20071219, end: 20071219
  13. ELPLAT [Suspect]
     Route: 041
     Dates: start: 20080116, end: 20080116
  14. ELPLAT [Suspect]
     Route: 041
     Dates: start: 20080207, end: 20080207
  15. ELPLAT [Suspect]
     Route: 041
     Dates: start: 20080305, end: 20080305
  16. ELPLAT [Suspect]
     Route: 041
     Dates: start: 20080402, end: 20080402
  17. FLUOROURACIL [Suspect]
     Indication: COLON CANCER RECURRENT
     Route: 042
     Dates: start: 20070925, end: 20070926
  18. FLUOROURACIL [Suspect]
     Route: 042
     Dates: start: 20070925, end: 20070927
  19. FLUOROURACIL [Suspect]
     Route: 042
     Dates: start: 20071023, end: 20071024
  20. FLUOROURACIL [Suspect]
     Route: 042
     Dates: start: 20071023, end: 20071025
  21. FLUOROURACIL [Suspect]
     Route: 042
     Dates: start: 20071121, end: 20071122
  22. FLUOROURACIL [Suspect]
     Route: 042
     Dates: start: 20071121, end: 20071123
  23. FLUOROURACIL [Suspect]
     Route: 042
     Dates: start: 20071219, end: 20071221
  24. FLUOROURACIL [Suspect]
     Route: 042
     Dates: start: 20080116, end: 20080117
  25. FLUOROURACIL [Suspect]
     Route: 042
     Dates: start: 20080116, end: 20080118
  26. FLUOROURACIL [Suspect]
     Route: 042
     Dates: start: 20080207, end: 20080208
  27. FLUOROURACIL [Suspect]
     Route: 042
     Dates: start: 20080207, end: 20080209
  28. FLUOROURACIL [Suspect]
     Route: 042
     Dates: start: 20080305, end: 20080306
  29. FLUOROURACIL [Suspect]
     Route: 042
     Dates: start: 20080305, end: 20080307
  30. FLUOROURACIL [Suspect]
     Dosage: ROUTE: BOLUS, DRIP
     Route: 042
     Dates: start: 20080402, end: 20080404
  31. LEVOFOLINATE [Suspect]
     Indication: COLON CANCER RECURRENT
     Route: 041
     Dates: start: 20070925, end: 20070925
  32. LEVOFOLINATE [Suspect]
     Route: 041
     Dates: start: 20071023, end: 20071024
  33. LEVOFOLINATE [Suspect]
     Route: 041
     Dates: start: 20071121, end: 20071122
  34. LEVOFOLINATE [Suspect]
     Route: 041
     Dates: start: 20071219, end: 20071220
  35. LEVOFOLINATE [Suspect]
     Route: 041
     Dates: start: 20080116, end: 20080117
  36. LEVOFOLINATE [Suspect]
     Route: 041
     Dates: start: 20080207, end: 20080208
  37. LEVOFOLINATE [Suspect]
     Route: 041
     Dates: start: 20080305, end: 20080306
  38. LEVOFOLINATE [Suspect]
     Route: 041
     Dates: start: 20080402, end: 20080403
  39. TAGAMET [Concomitant]
     Dosage: FORM: PERORAL AGENT.
     Route: 048
  40. GASMOTIN [Concomitant]
     Route: 048
  41. MAGLAX [Concomitant]
     Dosage: FROM: PERORAL AGENT
     Route: 048
  42. TOUGHMAC [Concomitant]
     Dosage: FORM: PERORAL AGENT
     Route: 048
  43. DEXART [Concomitant]
     Route: 042
  44. KYTRIL [Concomitant]
     Route: 042
  45. CALCICOL [Concomitant]
     Route: 042

REACTIONS (5)
  - ANAL HAEMORRHAGE [None]
  - DISEASE PROGRESSION [None]
  - EPISTAXIS [None]
  - HYPERTENSION [None]
  - NEUTROPHIL COUNT DECREASED [None]
